FAERS Safety Report 7847111-6 (Version None)
Quarter: 2011Q4

REPORT INFORMATION
  Report Type: 
  Country: None (occurrence: None)
  Receive Date: 20111025
  Receipt Date: 20111018
  Transmission Date: 20120403
  Serious: Yes (Hospitalization)
  Sender: FDA-Public Use
  Company Number: JP-MERCK-1110USA03078

PATIENT
  Age: 90 Year
  Sex: Male

DRUGS (3)
  1. PURSENID [Concomitant]
     Route: 048
  2. ALLOPURINOL [Concomitant]
     Route: 048
  3. PEPCID RPD [Suspect]
     Route: 048

REACTIONS (1)
  - HYPOGLYCAEMIA [None]
